FAERS Safety Report 10967117 (Version 1)
Quarter: 2015Q1

REPORT INFORMATION
  Report Type: Spontaneous
  Country: None (occurrence: None)
  Receive Date: 20150226
  Receipt Date: 20150226
  Transmission Date: 20150721
  Serious: No
  Sender: FDA-Public Use
  Company Number: TPA2010A02392

PATIENT
  Age: 68 Year
  Sex: Male
  Weight: 72.58 kg

DRUGS (3)
  1. ULORIC [Suspect]
     Active Substance: FEBUXOSTAT
     Indication: GOUT
     Route: 048
     Dates: start: 200912, end: 201001
  2. DICLOFENAC [Concomitant]
     Active Substance: DICLOFENAC
  3. UNKNOWN CHOLESTEROL MEDICALTION (OTHER CHOLESTEROL AND TRIGLYCERIDE REDUCERS) [Concomitant]

REACTIONS (3)
  - Erythema [None]
  - Arthralgia [None]
  - Gout [None]

NARRATIVE: CASE EVENT DATE: 20100421
